FAERS Safety Report 7450403-6 (Version None)
Quarter: 2011Q2

REPORT INFORMATION
  Report Type: 
  Country: None (occurrence: None)
  Receive Date: 20110502
  Receipt Date: 20110420
  Transmission Date: 20111010
  Serious: Yes (Other)
  Sender: FDA-Public Use
  Company Number: US-CELGENEUS-163-20785-11042770

PATIENT
  Sex: Male

DRUGS (10)
  1. LIPITOR [Concomitant]
  2. METOPROLOL TARTRATE [Concomitant]
     Route: 065
  3. DIGOXIN [Concomitant]
     Route: 065
  4. METFORMIN HCL [Concomitant]
     Route: 065
  5. JANTOVEN [Concomitant]
     Route: 065
  6. THALOMID [Suspect]
     Dosage: 25 MILLIGRAM
     Route: 048
  7. KLOR-CON M20 [Concomitant]
     Dosage: M20
     Route: 065
  8. WELCHOL [Concomitant]
     Route: 065
  9. VERAPAMIL HCL [Concomitant]
     Route: 065
  10. THALOMID [Suspect]
     Indication: MULTIPLE MYELOMA
     Dosage: 50 MILLIGRAM
     Route: 048
     Dates: start: 20110407

REACTIONS (2)
  - FALL [None]
  - MUSCULAR WEAKNESS [None]
